FAERS Safety Report 8109604-6 (Version None)
Quarter: 2012Q1

REPORT INFORMATION
  Report Type: 
  Country: None (occurrence: None)
  Receive Date: 20120202
  Receipt Date: 20120117
  Transmission Date: 20120608
  Serious: No
  Sender: FDA-Public Use
  Company Number: US-AMGEN-USASP2012003398

PATIENT
  Sex: Female

DRUGS (2)
  1. ENBREL [Suspect]
     Indication: RHEUMATOID ARTHRITIS
     Dosage: 50 MG, QWK
     Dates: start: 20080314, end: 20111001
  2. TREXALL [Concomitant]
     Dosage: 1 MG, UNK
     Dates: start: 20111001

REACTIONS (2)
  - CHEST PAIN [None]
  - RHEUMATOID ARTHRITIS [None]
